FAERS Safety Report 6783190-5 (Version None)
Quarter: 2010Q2

REPORT INFORMATION
  Report Type: 
  Country: None (occurrence: None)
  Receive Date: 20100622
  Receipt Date: 20100611
  Transmission Date: 20101027
  Serious: Yes (Hospitalization)
  Sender: FDA-Public Use
  Company Number: US-JNJFOC-20100506690

PATIENT
  Age: 4 Year
  Sex: Female

DRUGS (9)
  1. CHILDREN'S MOTRIN [Suspect]
     Indication: EAR INFECTION
     Route: 048
  2. CHILDREN'S MOTRIN [Suspect]
     Indication: TEETHING
     Route: 048
  3. CHILDREN'S MOTRIN [Suspect]
     Indication: PYREXIA
     Route: 048
  4. CHILDREN'S TYLENOL SUSPENSION [Suspect]
     Indication: EAR INFECTION
     Route: 048
  5. CHILDREN'S TYLENOL SUSPENSION [Suspect]
     Indication: TEETHING
     Route: 048
  6. CHILDREN'S TYLENOL SUSPENSION [Suspect]
     Indication: MULTIPLE ALLERGIES
     Route: 048
  7. CHILDREN'S TYLENOL SUSPENSION [Suspect]
     Indication: EAR INFECTION
     Route: 048
  8. CHILDREN'S TYLENOL SUSPENSION [Suspect]
     Indication: TEETHING
     Route: 048
  9. CHILDREN'S TYLENOL SUSPENSION [Suspect]
     Indication: PYREXIA
     Route: 048

REACTIONS (4)
  - GASTROINTESTINAL DISORDER [None]
  - HOSPITALISATION [None]
  - PRODUCT QUALITY ISSUE [None]
  - TRANSMISSION OF AN INFECTIOUS AGENT VIA A MEDICINAL PRODUCT [None]
